FAERS Safety Report 23851325 (Version 1)
Quarter: 2024Q2

REPORT INFORMATION
  Report Type: Spontaneous
  Country: NO (occurrence: NO)
  Receive Date: 20240514
  Receipt Date: 20240514
  Transmission Date: 20240716
  Serious: Yes (Hospitalization, Other)
  Sender: FDA-Public Use
  Company Number: NO-MLMSERVICE-20240425-PI037965-00246-1

PATIENT
  Age: 67 Year
  Sex: Male

DRUGS (4)
  1. OLANZAPINE [Suspect]
     Active Substance: OLANZAPINE
     Indication: Major depression
     Dosage: DAILY DOSE: 10 MILLIGRAM
  2. RISPERIDONE [Concomitant]
     Active Substance: RISPERIDONE
     Indication: Antipsychotic therapy
     Dosage: DAILY DOSE: 0.5 MILLIGRAM
  3. MIRTAZAPINE [Concomitant]
     Active Substance: MIRTAZAPINE
     Indication: Antidepressant therapy
     Dosage: DAILY DOSE: 30 MILLIGRAM
  4. LITHIUM [Concomitant]
     Active Substance: LITHIUM
     Dosage: DAILY DOSE: 42 MILLIGRAM

REACTIONS (4)
  - Condition aggravated [Unknown]
  - Movement disorder [Recovered/Resolved]
  - Coordination abnormal [Recovered/Resolved]
  - Apraxia [Recovered/Resolved]
